FAERS Safety Report 9501666 (Version 1)
Quarter: 2013Q1

REPORT INFORMATION
  Report Type: Spontaneous
  Country: US (occurrence: None)
  Receive Date: 20130107
  Receipt Date: 20130107
  Transmission Date: 20140127
  Serious: No
  Sender: FDA-Public Use
  Company Number: PHEH2012US022689

PATIENT
  Age: 36 Year
  Sex: Female
  Weight: 67.6 kg

DRUGS (6)
  1. GILENYA (FINGOLIMOD) CAPSULE, 0.5MG [Suspect]
     Indication: MULTIPLE SCLEROSIS
     Route: 048
     Dates: start: 20121107
  2. FAMPRIDINE (FAMPRIDINE) [Concomitant]
  3. BUPAD (BUPAD) [Concomitant]
  4. TEGRETOL (CARBAMAZEPINE) UNKNOWN [Concomitant]
  5. MIRALAX [Concomitant]
  6. LANTUS (INSULIN GLARGINE) [Concomitant]

REACTIONS (3)
  - Dysgraphia [None]
  - Tremor [None]
  - Blood glucose decreased [None]
